FAERS Safety Report 7559707-X (Version None)
Quarter: 2011Q2

REPORT INFORMATION
  Report Type: 
  Country: None (occurrence: None)
  Receive Date: 20110621
  Receipt Date: 20110608
  Transmission Date: 20111010
  Serious: Yes (Other)
  Sender: FDA-Public Use
  Company Number: US-ELI_LILLY_AND_COMPANY-US201105006684

PATIENT
  Sex: Male

DRUGS (6)
  1. ZYPREXA [Suspect]
     Indication: SCHIZOPHRENIA
     Dosage: 40 MG, QD
     Dates: start: 20110511
  2. ATIVAN [Concomitant]
     Dosage: 4 MG, QD
  3. CELEXA [Concomitant]
     Indication: OBSESSIVE-COMPULSIVE DISORDER
     Dosage: UNK
  4. ZYPREXA [Suspect]
     Dosage: 50 MG, QD
     Dates: start: 20110525
  5. ATIVAN [Concomitant]
     Dosage: 2 MG, TID
  6. ATIVAN [Concomitant]
     Dosage: 8 MG, UNK

REACTIONS (10)
  - WEIGHT INCREASED [None]
  - INCORRECT ROUTE OF DRUG ADMINISTRATION [None]
  - SEBORRHOEA [None]
  - SPEECH DISORDER [None]
  - SECRETION DISCHARGE [None]
  - WRONG TECHNIQUE IN DRUG USAGE PROCESS [None]
  - ASPIRATION [None]
  - MUSCULAR WEAKNESS [None]
  - OVERDOSE [None]
  - DYSPHAGIA [None]
